FAERS Safety Report 15113379 (Version 2)
Quarter: 2018Q3

REPORT INFORMATION
  Report Type: Report from Study
  Country: IT (occurrence: IT)
  Receive Date: 20180706
  Receipt Date: 20180717
  Transmission Date: 20181010
  Serious: Yes (Hospitalization)
  Sender: FDA-Public Use
  Company Number: IT-TEVA-2018-IT-921219

PATIENT
  Age: 22 Year
  Sex: Female

DRUGS (4)
  1. ACIDO VALPROICO SANDOZ [Suspect]
     Active Substance: VALPROATE SODIUM
     Route: 048
     Dates: start: 20161007, end: 20161007
  2. ESCITALOPRAM [Concomitant]
     Active Substance: ESCITALOPRAM OXALATE
     Route: 048
  3. ZOLPIDEM [Suspect]
     Active Substance: ZOLPIDEM\ZOLPIDEM TARTRATE
     Route: 048
     Dates: start: 20161007, end: 20161007
  4. PROPIFENAZONE/BUTALBITAL/CAFFEINA [Suspect]
     Active Substance: BUTALBITAL\CAFFEINE\PROPYPHENAZONE
     Route: 048
     Dates: start: 20161007, end: 20161007

REACTIONS (2)
  - Intentional self-injury [Recovered/Resolved]
  - Somnolence [Recovered/Resolved]

NARRATIVE: CASE EVENT DATE: 20161007
